FAERS Safety Report 18067142 (Version 1)
Quarter: 2020Q3

REPORT INFORMATION
  Report Type: Spontaneous
  Country: IT (occurrence: IT)
  Receive Date: 20200724
  Receipt Date: 20200724
  Transmission Date: 20201103
  Serious: Yes (Life-Threatening)
  Sender: FDA-Public Use
  Company Number: IT-009507513-2007ITA005414

PATIENT
  Age: 32 Year
  Sex: Female
  Weight: 56 kg

DRUGS (2)
  1. ASPIRINA [Concomitant]
     Active Substance: ASPIRIN
     Indication: ANALGESIC THERAPY
     Dosage: 500 MILLIGRAM, (TOTAL)
     Route: 048
     Dates: start: 20191109, end: 20191109
  2. NUVARING [Suspect]
     Active Substance: ETHINYL ESTRADIOL\ETONOGESTREL
     Indication: CONTRACEPTION
     Dosage: 1 DOSAGE FORM, EVERY 24 HOURS, VAGINAL DEVICE
     Route: 067
     Dates: start: 20161001, end: 20191110

REACTIONS (3)
  - Pulmonary embolism [Recovered/Resolved with Sequelae]
  - Intracardiac thrombus [Recovered/Resolved with Sequelae]
  - Cardiac failure [Recovered/Resolved with Sequelae]

NARRATIVE: CASE EVENT DATE: 20191109
